FAERS Safety Report 8491308-1 (Version None)
Quarter: 2012Q3

REPORT INFORMATION
  Report Type: 
  Country: None (occurrence: None)
  Receive Date: 20120706
  Receipt Date: 20120629
  Transmission Date: 20120928
  Serious: Yes (Other)
  Sender: FDA-Public Use
  Company Number: PHHY2012GB057636

PATIENT
  Sex: Male

DRUGS (1)
  1. LETROZOLE [Suspect]
     Indication: OVULATION INDUCTION
     Dosage: UNK UKN, UNK
     Route: 064

REACTIONS (2)
  - GENE MUTATION IDENTIFICATION TEST POSITIVE [None]
  - FOETAL EXPOSURE DURING PREGNANCY [None]
